FAERS Safety Report 7338743-2 (Version None)
Quarter: 2011Q1

REPORT INFORMATION
  Report Type: 
  Country: None (occurrence: None)
  Receive Date: 20110308
  Receipt Date: 20110228
  Transmission Date: 20110831
  Serious: Yes (Other)
  Sender: FDA-Public Use
  Company Number: B0704481A

PATIENT
  Age: 5 Year
  Sex: Female

DRUGS (1)
  1. CLAVULANIC ACID AMOXICILLIN [Suspect]
     Indication: URINARY TRACT INFECTION
     Dosage: 1TSP TWICE PER DAY
     Route: 048
     Dates: start: 20110104, end: 20110105

REACTIONS (10)
  - CRYING [None]
  - HEADACHE [None]
  - HEARING IMPAIRED [None]
  - CHEST PAIN [None]
  - PSYCHOTIC BEHAVIOUR [None]
  - VISUAL IMPAIRMENT [None]
  - CONFUSIONAL STATE [None]
  - ABNORMAL BEHAVIOUR [None]
  - CONVULSION [None]
  - PSYCHOMOTOR HYPERACTIVITY [None]
